FAERS Safety Report 9856467 (Version 1)
Quarter: 2014Q1

REPORT INFORMATION
  Report Type: Spontaneous
  Country: US (occurrence: US)
  Receive Date: 20140130
  Receipt Date: 20140130
  Transmission Date: 20141002
  Serious: Yes (Death)
  Sender: FDA-Public Use
  Company Number: CHPA2014US001529

PATIENT
  Age: 39 Year
  Sex: Female

DRUGS (6)
  1. ACETAMINOPHEN, DIPHENHYDRAMINE CITRATE [Suspect]
     Route: 048
  2. BUTALBITAL, ACETAMINOPHEN + CAFFEINE [Suspect]
     Route: 048
  3. BUPROPION [Suspect]
     Route: 048
  4. PROMETHAZINE [Suspect]
     Route: 048
  5. CARISOPRODOL [Suspect]
     Route: 048
  6. ZOLPIDEM [Suspect]
     Route: 048

REACTIONS (1)
  - Completed suicide [Fatal]
